FAERS Safety Report 26087277 (Version 1)
Quarter: 2025Q4

REPORT INFORMATION
  Report Type: Spontaneous
  Country: US (occurrence: None)
  Receive Date: 20251124
  Receipt Date: 20251124
  Transmission Date: 20260117
  Serious: Yes (Hospitalization)
  Sender: FDA-CTU
  Company Number: None

PATIENT
  Age: 50 Year
  Sex: Female

DRUGS (20)
  1. BENLYSTA [Suspect]
     Active Substance: BELIMUMAB
     Dosage: OTHER FREQUENCY : 1 SYRINGE EVERY OTHER WEEK;?
     Route: 058
     Dates: start: 20250623
  2. DOXAZOSIN [Concomitant]
     Active Substance: DOXAZOSIN MESYLATE
  3. ESTRADIOL 0.025MG PATCH (ONCE WK [Concomitant]
  4. ALBUTEROL HFA INH (200 PUFFS) 18GM [Concomitant]
  5. AMLODIPINE BESYLATE [Concomitant]
     Active Substance: AMLODIPINE BESYLATE
  6. AMLODIPINE BESYLATE [Concomitant]
     Active Substance: AMLODIPINE BESYLATE
  7. CLOBETASOL PROP 0.05% CREAM 15GM [Concomitant]
  8. DIAZEPAM 2MG TABLETS [Concomitant]
  9. FERROUS SULFATE 324MG EC TABS RED [Concomitant]
  10. INCRUSE ELLIPTA 62.5MCG ORAL INH 30 [Concomitant]
  11. VITAMIN E [Concomitant]
     Active Substance: .ALPHA.-TOCOPHEROL
  12. VITAMIN D 1,000IU H/PTNCY CAPSULES [Concomitant]
  13. VITAMIN C 1000MG TABLETS [Concomitant]
  14. VALAGYCLOVIR 1cM TABLETS [Concomitant]
  15. TRIAMCINOLONE 0.025% CREAM 15GM [Concomitant]
  16. TIMOLOL MALEATE 0.25% OPHT SOL 1 0ML [Concomitant]
  17. TACROLIMUS 0.03% OINTMENT 100cM [Concomitant]
  18. SYMBICORT 160/4.SMCG (120 ORAL INH) [Concomitant]
  19. SERTRALINE [Concomitant]
     Active Substance: SERTRALINE HYDROCHLORIDE
  20. LIDOCAINE [Concomitant]
     Active Substance: LIDOCAINE

REACTIONS (1)
  - Transient ischaemic attack [None]

NARRATIVE: CASE EVENT DATE: 20251117
